FAERS Safety Report 5622485-5 (Version None)
Quarter: 2008Q1

REPORT INFORMATION
  Report Type: 
  Country: None (occurrence: None)
  Receive Date: 20080211
  Receipt Date: 20080131
  Transmission Date: 20080703
  Serious: Yes (Other)
  Sender: FDA-Public Use
  Company Number: US-PFIZER INC-2008010339

PATIENT
  Sex: Female
  Weight: 81.818 kg

DRUGS (3)
  1. CHANTIX [Suspect]
     Indication: SMOKING CESSATION THERAPY
     Dates: start: 20071001, end: 20071001
  2. NOVOLOG [Concomitant]
  3. INSULIN DETEMIR [Concomitant]

REACTIONS (1)
  - BLOOD GLUCOSE INCREASED [None]
